FAERS Safety Report 6463828-2 (Version None)
Quarter: 2009Q4

REPORT INFORMATION
  Report Type: 
  Country: None (occurrence: None)
  Receive Date: 20091201
  Receipt Date: 20091124
  Transmission Date: 20100525
  Serious: Yes (Life-Threatening, Hospitalization, Other)
  Sender: FDA-Public Use
  Company Number: US-JNJFOC-20091107594

PATIENT
  Age: 36 Year
  Sex: Male

DRUGS (3)
  1. IMODIUM A-D [Suspect]
     Route: 048
     Dates: start: 20050717
  2. IMODIUM A-D [Suspect]
     Indication: DIARRHOEA
     Route: 048
     Dates: start: 20050717
  3. EPIPEN [Concomitant]
     Indication: HYPERSENSITIVITY

REACTIONS (7)
  - ANAPHYLACTIC SHOCK [None]
  - CARDIAC ARREST [None]
  - CARDIAC PERFORATION [None]
  - INTRACARDIAC THROMBUS [None]
  - ORAL PRURITUS [None]
  - PHLEBITIS [None]
  - THROAT TIGHTNESS [None]
